FAERS Safety Report 25204505 (Version 1)
Quarter: 2025Q2

REPORT INFORMATION
  Report Type: Spontaneous
  Country: HU (occurrence: HU)
  Receive Date: 20250416
  Receipt Date: 20250416
  Transmission Date: 20250716
  Serious: Yes (Other)
  Sender: MYLAN
  Company Number: HU-002147023-NVSC2025HU052806

PATIENT
  Sex: Female

DRUGS (12)
  1. VALSARTAN [Suspect]
     Active Substance: VALSARTAN
     Indication: Product used for unknown indication
  2. DICLOFENAC [Suspect]
     Active Substance: DICLOFENAC
     Indication: Product used for unknown indication
  3. LETROZOLE [Suspect]
     Active Substance: LETROZOLE
     Indication: Breast cancer
  4. RIBOCICLIB [Suspect]
     Active Substance: RIBOCICLIB
     Indication: Breast cancer
  5. RIBOCICLIB [Suspect]
     Active Substance: RIBOCICLIB
  6. RIBOCICLIB [Suspect]
     Active Substance: RIBOCICLIB
  7. AMLODIPINE [Concomitant]
     Active Substance: AMLODIPINE BESYLATE
     Indication: Product used for unknown indication
  8. NEBIVOLOL [Concomitant]
     Active Substance: NEBIVOLOL
     Indication: Product used for unknown indication
  9. NAPROXEN [Concomitant]
     Active Substance: NAPROXEN
     Indication: Product used for unknown indication
  10. CLONAZEPAM [Concomitant]
     Active Substance: CLONAZEPAM
     Indication: Product used for unknown indication
  11. TRAMADOL [Concomitant]
     Active Substance: TRAMADOL
     Indication: Product used for unknown indication
  12. ATORVASTATIN [Concomitant]
     Active Substance: ATORVASTATIN
     Indication: Product used for unknown indication

REACTIONS (19)
  - Loss of consciousness [Unknown]
  - Pulmonary oedema [Recovered/Resolved]
  - COVID-19 [Recovered/Resolved]
  - Leukopenia [Recovering/Resolving]
  - Hypoventilation [Unknown]
  - Pulmonary mass [Unknown]
  - Metastases to bone [Unknown]
  - Thrombosis [Unknown]
  - Pleural thickening [Recovered/Resolved]
  - Anaemia [Not Recovered/Not Resolved]
  - Asthenia [Unknown]
  - Cholelithiasis [Unknown]
  - Polycystic ovaries [Recovering/Resolving]
  - Ovarian enlargement [Unknown]
  - Inflammation [Unknown]
  - Weight decreased [Unknown]
  - Blood thyroid stimulating hormone increased [Unknown]
  - Lymphadenopathy [Recovered/Resolved]
  - Degenerative bone disease [Unknown]

NARRATIVE: CASE EVENT DATE: 20191025
